FAERS Safety Report 16657374 (Version 1)
Quarter: 2019Q3

REPORT INFORMATION
  Report Type: Spontaneous
  Country: US (occurrence: US)
  Receive Date: 20190801
  Receipt Date: 20190801
  Transmission Date: 20191004
  Serious: No
  Sender: FDA-Public Use
  Company Number: US-SA-2019SA204914

PATIENT
  Sex: Female

DRUGS (6)
  1. CLINDAMYCIN. [Concomitant]
     Active Substance: CLINDAMYCIN
  2. LEVOTHYROXIN [Concomitant]
     Active Substance: LEVOTHYROXINE
  3. ZETIA [Concomitant]
     Active Substance: EZETIMIBE
  4. EZETIMIBE. [Concomitant]
     Active Substance: EZETIMIBE
  5. PRALUENT [Suspect]
     Active Substance: ALIROCUMAB
     Indication: MYOCARDIAL INFARCTION
     Dosage: 150 MG, QOW
     Route: 058
     Dates: start: 20170419
  6. ZOLPIDEM [Concomitant]
     Active Substance: ZOLPIDEM TARTRATE

REACTIONS (1)
  - Product dose omission [Unknown]
